FAERS Safety Report 25526993 (Version 1)
Quarter: 2025Q3

REPORT INFORMATION
  Report Type: Spontaneous
  Country: US (occurrence: US)
  Receive Date: 20250708
  Receipt Date: 20250708
  Transmission Date: 20251020
  Serious: Yes (Other)
  Sender: AMGEN
  Company Number: US-AMGEN-USASP2025125354

PATIENT
  Age: 35 Year
  Sex: Male

DRUGS (2)
  1. PREDNISONE [Suspect]
     Active Substance: PREDNISONE
     Indication: Schwannoma
     Route: 065
  2. PENICILLIN G [Concomitant]
     Active Substance: PENICILLIN G
     Route: 065

REACTIONS (3)
  - Neurosyphilis [Recovering/Resolving]
  - HIV test positive [Unknown]
  - Off label use [Unknown]
